FAERS Safety Report 8804503 (Version 2)
Quarter: 2015Q1

REPORT INFORMATION
  Report Type: Report from Study
  Country: US (occurrence: US)
  Receive Date: 20120924
  Receipt Date: 20150304
  Transmission Date: 20150721
  Serious: Yes (Death, Other)
  Sender: FDA-Public Use
  Company Number: US-ROCHE-1093329

PATIENT
  Sex: Male

DRUGS (32)
  1. AVASTIN [Suspect]
     Active Substance: BEVACIZUMAB
     Route: 042
     Dates: start: 20070409
  2. NEUPOGEN [Concomitant]
     Active Substance: FILGRASTIM
     Route: 058
  3. FOLIC ACID. [Concomitant]
     Active Substance: FOLIC ACID
     Route: 048
  4. PRILOSEC [Concomitant]
     Active Substance: OMEPRAZOLE MAGNESIUM
     Route: 048
  5. LEVAQUIN [Concomitant]
     Active Substance: LEVOFLOXACIN
     Route: 048
  6. LIPITOR [Concomitant]
     Active Substance: ATORVASTATIN CALCIUM
     Route: 048
  7. AVASTIN [Suspect]
     Active Substance: BEVACIZUMAB
     Indication: BLADDER CANCER
     Route: 042
  8. OXANDRIN [Concomitant]
     Active Substance: OXANDROLONE
     Route: 048
  9. TAXOTERE [Concomitant]
     Active Substance: DOCETAXEL
     Route: 042
  10. ANZEMET [Concomitant]
     Active Substance: DOLASETRON MESYLATE
     Route: 042
  11. ARANESP [Concomitant]
     Active Substance: DARBEPOETIN ALFA
     Route: 042
  12. NORVASC [Concomitant]
     Active Substance: AMLODIPINE BESYLATE
  13. NEURONTIN [Concomitant]
     Active Substance: GABAPENTIN
     Route: 048
  14. TYLENOL [Concomitant]
     Active Substance: ACETAMINOPHEN
     Route: 048
  15. WELLBUTRIN [Concomitant]
     Active Substance: BUPROPION HYDROCHLORIDE
     Route: 048
  16. NEULASTA [Concomitant]
     Active Substance: PEGFILGRASTIM
     Route: 065
  17. ALIMTA [Concomitant]
     Active Substance: PEMETREXED DISODIUM
     Route: 042
  18. TAXOTERE [Concomitant]
     Active Substance: DOCETAXEL
     Route: 042
  19. COLACE [Concomitant]
     Active Substance: DOCUSATE SODIUM
     Route: 048
  20. FENTANYL. [Concomitant]
     Active Substance: FENTANYL
     Route: 062
  21. HEPARIN [Concomitant]
     Active Substance: HEPARIN SODIUM
     Route: 065
  22. GEMZAR [Concomitant]
     Active Substance: GEMCITABINE HYDROCHLORIDE
     Route: 042
  23. GENTAMICIN. [Concomitant]
     Active Substance: GENTAMICIN
     Route: 061
  24. BENADRYL [Concomitant]
     Active Substance: DIPHENHYDRAMINE HYDROCHLORIDE
     Route: 048
  25. BACTRIM [Concomitant]
     Active Substance: SULFAMETHOXAZOLE\TRIMETHOPRIM
     Route: 065
  26. DECADRON [Concomitant]
     Active Substance: DEXAMETHASONE
     Route: 048
  27. ATIVAN [Concomitant]
     Active Substance: LORAZEPAM
     Route: 048
  28. CARBOPLATIN. [Suspect]
     Active Substance: CARBOPLATIN
     Indication: PRODUCT USED FOR UNKNOWN INDICATION
     Route: 042
  29. ATENOLOL. [Concomitant]
     Active Substance: ATENOLOL
     Route: 048
  30. OXYCONTIN [Concomitant]
     Active Substance: OXYCODONE HYDROCHLORIDE
     Route: 048
  31. AMBIEN [Concomitant]
     Active Substance: ZOLPIDEM TARTRATE
     Route: 048
  32. DIFLUCAN [Concomitant]
     Active Substance: FLUCONAZOLE
     Route: 048

REACTIONS (18)
  - Urinary tract infection [Unknown]
  - Rash erythematous [Recovering/Resolving]
  - Neutropenia [Unknown]
  - Hiccups [Unknown]
  - Anaemia [Unknown]
  - Death [Fatal]
  - Asthenia [Unknown]
  - Intestinal obstruction [Unknown]
  - Dehydration [Unknown]
  - Fatigue [Unknown]
  - Wound haemorrhage [Recovered/Resolved]
  - Insomnia [Unknown]
  - Arthralgia [Unknown]
  - Proteinuria [Unknown]
  - Off label use [Unknown]
  - Nausea [Unknown]
  - Sciatica [Unknown]
  - Chills [Unknown]
